FAERS Safety Report 13045770 (Version 1)
Quarter: 2016Q4

REPORT INFORMATION
  Report Type: Spontaneous
  Country: US (occurrence: US)
  Receive Date: 20161220
  Receipt Date: 20161220
  Transmission Date: 20170207
  Serious: Yes (Hospitalization, Other)
  Sender: FDA-Public Use
  Company Number: US-TEVA-721306USA

PATIENT
  Age: 64 Year
  Sex: Male

DRUGS (1)
  1. BLEOMYCIN [Suspect]
     Active Substance: BLEOMYCIN SULFATE
     Indication: HODGKIN^S DISEASE
     Route: 065

REACTIONS (4)
  - Pulmonary embolism [Recovering/Resolving]
  - Interstitial lung disease [Recovering/Resolving]
  - Pneumonitis [Recovering/Resolving]
  - Alveolitis [Recovering/Resolving]
